FAERS Safety Report 10053981 (Version 1)
Quarter: 2014Q2

REPORT INFORMATION
  Report Type: Spontaneous
  Country: US (occurrence: US)
  Receive Date: 20140402
  Receipt Date: 20140402
  Transmission Date: 20141212
  Serious: No
  Sender: FDA-Public Use
  Company Number: US-AMGEN-USASP2014017053

PATIENT
  Age: 46 Year
  Sex: Female

DRUGS (4)
  1. ENBREL [Suspect]
     Indication: RHEUMATOID ARTHRITIS
     Dosage: 50 MG, QWK
     Route: 065
     Dates: start: 20140214
  2. PREDNISONE [Concomitant]
     Dosage: 10 MG, QD
  3. METHOTREXATE [Concomitant]
     Dosage: 25 MG, QWK
     Route: 048
  4. MOBIC [Concomitant]
     Dosage: 15 MG, QD

REACTIONS (1)
  - Night sweats [Not Recovered/Not Resolved]
